FAERS Safety Report 13933056 (Version 2)
Quarter: 2017Q3

REPORT INFORMATION
  Report Type: Spontaneous
  Country: RS (occurrence: RS)
  Receive Date: 20170904
  Receipt Date: 20170914
  Transmission Date: 20171127
  Serious: Yes (Hospitalization, Other)
  Sender: FDA-Public Use
  Company Number: RS-PFIZER INC-2017129273

PATIENT
  Age: 30 Year
  Sex: Male

DRUGS (1)
  1. LYRICA [Suspect]
     Active Substance: PREGABALIN
     Indication: ANXIETY
     Dosage: 75 MG, 3X/DAY
     Dates: start: 20170301, end: 20170401

REACTIONS (10)
  - Tachycardia [Not Recovered/Not Resolved]
  - Tension [Unknown]
  - Disturbance in attention [Unknown]
  - Insomnia [Unknown]
  - Arrhythmia [Not Recovered/Not Resolved]
  - Head discomfort [Not Recovered/Not Resolved]
  - Pain in extremity [Unknown]
  - Heart rate irregular [Recovered/Resolved]
  - Hypertension [Unknown]
  - Blood pressure fluctuation [Recovered/Resolved]

NARRATIVE: CASE EVENT DATE: 20170315
